FAERS Safety Report 15530796 (Version 3)
Quarter: 2019Q1

REPORT INFORMATION
  Report Type: Not Available
  Country: US (occurrence: US)
  Receive Date: 20181018
  Receipt Date: 20190211
  Transmission Date: 20190417
  Serious: No
  Sender: FDA-Public Use
  Company Number: US-NEUROCRINE BIOSCIENCES INC.-2018NBI03036

PATIENT
  Age: 31 Year
  Sex: Male

DRUGS (10)
  1. FISH OIL [Concomitant]
     Active Substance: FISH OIL
     Indication: PROPHYLAXIS
     Route: 048
  2. INGREZZA [Suspect]
     Active Substance: VALBENAZINE
     Indication: TARDIVE DYSKINESIA
     Route: 048
     Dates: start: 20171023, end: 20171030
  3. INGREZZA [Suspect]
     Active Substance: VALBENAZINE
     Route: 048
     Dates: start: 20171031
  4. MULTIVITAMIN [Concomitant]
     Active Substance: VITAMINS
     Dosage: AT NIGHT
  5. GEODON [Concomitant]
     Active Substance: ZIPRASIDONE HYDROCHLORIDE\ZIPRASIDONE MESYLATE
     Indication: ANXIETY
     Dosage: ONCE IN THE MORNING
  6. GEODON [Concomitant]
     Active Substance: ZIPRASIDONE HYDROCHLORIDE\ZIPRASIDONE MESYLATE
     Indication: HALLUCINATION, AUDITORY
     Dosage: TAKEN AT NIGHT
  7. GEODON [Concomitant]
     Active Substance: ZIPRASIDONE HYDROCHLORIDE\ZIPRASIDONE MESYLATE
     Dosage: TAKEN AT NIGHT
  8. IRON [Concomitant]
     Active Substance: IRON
     Indication: MINERAL SUPPLEMENTATION
     Route: 048
  9. GLUCOSAMINE [Suspect]
     Active Substance: GLUCOSAMINE
     Indication: LOWER LIMB FRACTURE
     Route: 048
  10. ZINC. [Concomitant]
     Active Substance: ZINC
     Indication: PROPHYLAXIS
     Route: 048

REACTIONS (3)
  - Somnolence [Recovered/Resolved]
  - Memory impairment [Recovered/Resolved]
  - Product dose omission [Unknown]

NARRATIVE: CASE EVENT DATE: 201803
